FAERS Safety Report 5926084-7 (Version None)
Quarter: 2008Q4

REPORT INFORMATION
  Report Type: 
  Country: None (occurrence: None)
  Receive Date: 20081016
  Receipt Date: 20080930
  Transmission Date: 20090506
  Serious: Yes (Hospitalization)
  Sender: FDA-Public Use
  Company Number: DSA_32423_2008

PATIENT
  Sex: Female

DRUGS (4)
  1. TAVOR/00273201/ (TAVOR-LORAZEPAM) 1 MG (NOT SPECIFIED) [Suspect]
     Dosage: 12 MG 1X, NOT THE PRESCRIBED AMOUNT ORAL
     Route: 048
     Dates: start: 20080908, end: 20080908
  2. ERGENYL (ERGENYL-VALPROATE SODIUM) [Suspect]
     Dosage: 600 MG, 1 X, NOT THE PRESCRIBED AMOUNT ORAL
     Route: 048
     Dates: start: 20080908, end: 20080908
  3. SEROQUEL [Suspect]
     Dosage: 1000 MG, 1 X, NOT THE PRESCRIBED AMOUNT ORAL
     Route: 048
     Dates: start: 20080908, end: 20080908
  4. TRAMA/00599202/ (TRAMAL-TRAMADOL HYDROCHLORIDE) (NOT SPECIFIED) [Suspect]
     Dosage: 200 GTT 1X, NOT THE PRESCRIBED AMOUNT ORAL
     Route: 048
     Dates: start: 20080908, end: 20080908

REACTIONS (4)
  - MULTIPLE DRUG OVERDOSE INTENTIONAL [None]
  - SKIN LACERATION [None]
  - SOMNOLENCE [None]
  - SUICIDE ATTEMPT [None]
